FAERS Safety Report 17894138 (Version 3)
Quarter: 2020Q4

REPORT INFORMATION
  Report Type: Spontaneous
  Country: US (occurrence: US)
  Receive Date: 20200615
  Receipt Date: 20201015
  Transmission Date: 20210113
  Serious: Yes (Hospitalization, Other)
  Sender: FDA-Public Use
  Company Number: US-BRISTOL-MYERS SQUIBB COMPANY-BMS-2020-045885

PATIENT
  Age: 39 Year
  Sex: Male
  Weight: 72.6 kg

DRUGS (11)
  1. IPILIMUMAB [Suspect]
     Active Substance: IPILIMUMAB
     Indication: MALIGNANT MELANOMA
     Dosage: UNK
     Route: 065
     Dates: start: 20191227, end: 20191227
  2. BINIMETINIB [Suspect]
     Active Substance: BINIMETINIB
     Indication: BRAIN CANCER METASTATIC
     Dosage: 45 MILLIGRAM, BID
     Route: 048
     Dates: start: 20200221, end: 20200511
  3. GABAPENTIN. [Concomitant]
     Active Substance: GABAPENTIN
     Indication: NEURALGIA
     Dosage: UNK
     Route: 065
     Dates: start: 20200313
  4. PROTONIX [Concomitant]
     Active Substance: PANTOPRAZOLE SODIUM
     Indication: GASTROOESOPHAGEAL REFLUX DISEASE
     Dosage: UNK
     Route: 065
     Dates: start: 20200421
  5. PREDNISONE. [Concomitant]
     Active Substance: PREDNISONE
     Indication: NEUROPATHY PERIPHERAL
     Dosage: UNK
     Route: 065
     Dates: start: 20200421, end: 20200515
  6. IPILIMUMAB [Suspect]
     Active Substance: IPILIMUMAB
     Dosage: UNK
     Route: 065
     Dates: start: 20191227, end: 20200116
  7. NIVOLUMAB [Suspect]
     Active Substance: NIVOLUMAB
     Indication: MALIGNANT MELANOMA
     Dosage: 480 MILLIGRAM, QMO
     Route: 042
     Dates: start: 201907, end: 201911
  8. ENCORAFENIB [Suspect]
     Active Substance: ENCORAFENIB
     Indication: BRAIN CANCER METASTATIC
     Dosage: 300 MILLIGRAM, BID
     Route: 048
     Dates: start: 20200221, end: 20200511
  9. NIVOLUMAB [Suspect]
     Active Substance: NIVOLUMAB
     Dosage: UNK
     Route: 042
     Dates: start: 20200116, end: 20200116
  10. PREDNISONE. [Concomitant]
     Active Substance: PREDNISONE
     Dosage: 70 MILLIGRAM, QD, TAPER
     Route: 048
     Dates: start: 20200520
  11. NIFEDIPINE. [Concomitant]
     Active Substance: NIFEDIPINE
     Indication: BLOOD PRESSURE INCREASED
     Dosage: UNK
     Route: 065
     Dates: start: 20200508, end: 20200508

REACTIONS (1)
  - Peripheral sensory neuropathy [Recovered/Resolved]

NARRATIVE: CASE EVENT DATE: 20200515
